FAERS Safety Report 5401642-7 (Version None)
Quarter: 2007Q3

REPORT INFORMATION
  Report Type: 
  Country: None (occurrence: None)
  Receive Date: 20070731
  Receipt Date: 20070606
  Transmission Date: 20080115
  Serious: Yes (Other)
  Sender: FDA-Public Use
  Company Number: US-PURDUE-USA_2007_0028439

PATIENT
  Sex: Female

DRUGS (1)
  1. OXYCONTIN [Suspect]
     Indication: PAIN
     Dates: start: 20000505, end: 20010716

REACTIONS (3)
  - DRUG DEPENDENCE [None]
  - SUICIDAL IDEATION [None]
  - UNEVALUABLE EVENT [None]
